FAERS Safety Report 5763506-9 (Version None)
Quarter: 2008Q2

REPORT INFORMATION
  Report Type: 
  Country: None (occurrence: None)
  Receive Date: 20080610
  Receipt Date: 20080602
  Transmission Date: 20081010
  Serious: Yes (Other)
  Sender: FDA-Public Use
  Company Number: GB-RANBAXY-2008RR-15694

PATIENT

DRUGS (3)
  1. LISINOPRIL [Suspect]
  2. INSULIN [Suspect]
  3. SIMVASTATIN 10MG TABLETS [Suspect]

REACTIONS (2)
  - HYPOGLYCAEMIA [None]
  - SOMNOLENCE [None]
